FAERS Safety Report 7114147-2 (Version None)
Quarter: 2010Q4

REPORT INFORMATION
  Report Type: 
  Country: None (occurrence: None)
  Receive Date: 20101119
  Receipt Date: 20101116
  Transmission Date: 20110411
  Serious: Yes (Hospitalization)
  Sender: FDA-Public Use
  Company Number: DE-ABBOTT-10P-062-0685912-00

PATIENT
  Age: 46 Year
  Sex: Female

DRUGS (9)
  1. ERGENYL CHRONO TABLETS [Suspect]
     Indication: SCHIZOAFFECTIVE DISORDER DEPRESSIVE TYPE
     Route: 048
     Dates: end: 20100101
  2. ERGENYL CHRONO TABLETS [Suspect]
     Dates: start: 20100101, end: 20100201
  3. ERGENYL CHRONO TABLETS [Suspect]
     Route: 048
     Dates: start: 20100201
  4. RISPERDAL [Suspect]
     Indication: SCHIZOAFFECTIVE DISORDER DEPRESSIVE TYPE
     Dates: start: 20091223
  5. RISPERDAL [Suspect]
     Indication: THINKING ABNORMAL
  6. RISPERDAL [Suspect]
     Indication: RESTLESSNESS
     Dates: start: 20100101, end: 20100216
  7. RISPERDAL [Suspect]
     Dates: start: 20100219, end: 20100222
  8. TAVOR [Concomitant]
     Indication: PRODUCT USED FOR UNKNOWN INDICATION
     Dates: start: 20091201
  9. LEVOTHYROXINE SODIUM [Concomitant]
     Indication: PRODUCT USED FOR UNKNOWN INDICATION

REACTIONS (5)
  - AFFECT LABILITY [None]
  - AKATHISIA [None]
  - DEPRESSION [None]
  - MENTAL DISORDER [None]
  - SLEEP DISORDER [None]
